FAERS Safety Report 4465485-3 (Version None)
Quarter: 2004Q3

REPORT INFORMATION
  Report Type: 
  Country: None (occurrence: None)
  Receive Date: 20040930
  Receipt Date: 20040914
  Transmission Date: 20050211
  Serious: Yes (Other)
  Sender: FDA-Public Use
  Company Number: 2004-DE-04836GD

PATIENT
  Sex: 0

DRUGS (2)
  1. NEVIRAPINE(NEVIRAPINE) (NEVIRAPINE) [Suspect]
     Indication: HIV INFECTION
  2. NUCLEOSIDE (ANALOGUES (ANTIVIRALS FOR SYSTEMIC USE) [Suspect]
     Indication: HIV INFECTION

REACTIONS (2)
  - DRUG TOXICITY [None]
  - SYNOVITIS [None]
